FAERS Safety Report 6060235-1 (Version None)
Quarter: 2009Q1

REPORT INFORMATION
  Report Type: 
  Country: None (occurrence: None)
  Receive Date: 20090129
  Receipt Date: 20090116
  Transmission Date: 20090719
  Serious: Yes (Death)
  Sender: FDA-Public Use
  Company Number: 2009000185

PATIENT
  Age: 77 Year
  Sex: Male

DRUGS (8)
  1. ERLOTINIB / PLACEBO (ERLOTINIB HC1) (TABLET) (ERLOTINIB HC1) [Suspect]
     Indication: NON-SMALL CELL LUNG CANCER
     Dosage: 50 MG, QD, ORAL
     Route: 048
     Dates: start: 20070726, end: 20090106
  2. WARFARIN SODIUM [Concomitant]
  3. FERROUS SULPHATE (FERROUS SULFATE) [Concomitant]
  4. LEVOTHYROXINE SODIUM [Concomitant]
  5. ZOMAXIN (ZOMEPIRAC SODIUM) [Concomitant]
  6. DICLOFENAC (DICLOFENAC) [Concomitant]
  7. DEXAMETHASONE TAB [Concomitant]
  8. LANSOPRAZOLE [Concomitant]

REACTIONS (6)
  - DEHYDRATION [None]
  - DISEASE PROGRESSION [None]
  - DYSPNOEA [None]
  - GENERAL PHYSICAL HEALTH DETERIORATION [None]
  - HYPOTENSION [None]
  - NON-SMALL CELL LUNG CANCER [None]
